FAERS Safety Report 14430437 (Version 2)
Quarter: 2018Q1

REPORT INFORMATION
  Report Type: Spontaneous
  Country: RU (occurrence: RU)
  Receive Date: 20180124
  Receipt Date: 20180201
  Transmission Date: 20180509
  Serious: Yes (Other)
  Sender: FDA-Public Use
  Company Number: RU-ASTRAZENECA-2017SF20823

PATIENT
  Age: 62 Year
  Sex: Female
  Weight: 56 kg

DRUGS (6)
  1. ROSUVASTATIN. [Concomitant]
     Active Substance: ROSUVASTATIN
  2. ERYNIT [Concomitant]
     Active Substance: PENTAERYTHRITOL TETRANITRATE
  3. THROMBO ASS [Concomitant]
     Active Substance: ASPIRIN
  4. CORONAL [Concomitant]
  5. BRILINTA [Suspect]
     Active Substance: TICAGRELOR
     Indication: MYOCARDIAL INFARCTION
     Route: 048
     Dates: start: 20170420
  6. LOSARTAN. [Concomitant]
     Active Substance: LOSARTAN

REACTIONS (5)
  - Vascular stent stenosis [Recovered/Resolved]
  - Back pain [Unknown]
  - Contusion [Unknown]
  - Blood cholesterol increased [Unknown]
  - Chest pain [Unknown]

NARRATIVE: CASE EVENT DATE: 201705
